FAERS Safety Report 8288997-3 (Version None)
Quarter: 2012Q2

REPORT INFORMATION
  Report Type: 
  Country: None (occurrence: None)
  Receive Date: 20120412
  Receipt Date: 20120330
  Transmission Date: 20120825
  Serious: Yes (Other)
  Sender: FDA-Public Use
  Company Number: ALK_02421_2012

PATIENT

DRUGS (4)
  1. VIVITROL [Suspect]
     Indication: DRUG DEPENDENCE
     Dosage: 380 MG 1X/MONTH INTRAMUSCULAR
     Route: 030
     Dates: start: 20120309
  2. DOXEPIN HCL [Suspect]
     Indication: DEPRESSION
     Dosage: 25 MG QD
     Dates: start: 20120309
  3. DOXEPIN HCL [Suspect]
     Indication: INSOMNIA
     Dosage: 25 MG QD
     Dates: start: 20120309
  4. LAMICTAL [Suspect]
     Indication: BIPOLAR DISORDER
     Dosage: 25 MG QD, ORAL
     Route: 048
     Dates: start: 20120309, end: 20120312

REACTIONS (6)
  - DEPRESSION [None]
  - INSOMNIA [None]
  - CONDITION AGGRAVATED [None]
  - STEVENS-JOHNSON SYNDROME [None]
  - NAUSEA [None]
  - HEADACHE [None]
